FAERS Safety Report 4269106-4 (Version None)
Quarter: 2004Q1

REPORT INFORMATION
  Report Type: 
  Country: None (occurrence: None)
  Receive Date: 20040108
  Receipt Date: 20031218
  Transmission Date: 20041129
  Serious: Yes (Other)
  Sender: FDA-Public Use
  Company Number: JP_031202433

PATIENT
  Age: 81 Year
  Sex: Male

DRUGS (5)
  1. ONCOVIN [Suspect]
     Indication: DIFFUSE LARGE B-CELL LYMPHOMA STAGE III
     Dosage: 0.7 MG/M2/OTHER
     Route: 050
     Dates: start: 20020220
  2. CYCLOPHOSPHAMIDE [Concomitant]
  3. PIRARUBICIN [Concomitant]
  4. PREDNISOLONE [Concomitant]
  5. FILGRASTIM [Concomitant]

REACTIONS (3)
  - GRANULOCYTE COUNT DECREASED [None]
  - HERPES ZOSTER [None]
  - PNEUMONIA [None]
